FAERS Safety Report 9148217 (Version 3)
Quarter: 2013Q4

REPORT INFORMATION
  Report Type: Spontaneous
  Country: US (occurrence: US)
  Receive Date: 20130308
  Receipt Date: 20131104
  Transmission Date: 20140711
  Serious: Yes (Hospitalization)
  Sender: FDA-Public Use
  Company Number: US-BIOGENIDEC-2013BI021956

PATIENT
  Age: 34 Year
  Sex: Male

DRUGS (23)
  1. TYSABRI [Suspect]
     Indication: PRODUCT USED FOR UNKNOWN INDICATION
     Route: 042
  2. AMPYRA [Concomitant]
     Indication: GAIT DISTURBANCE
     Route: 048
     Dates: start: 2011, end: 201112
  3. AMPYRA [Concomitant]
     Indication: GAIT DISTURBANCE
     Route: 048
     Dates: start: 2012, end: 201301
  4. AMPYRA [Concomitant]
     Indication: GAIT DISTURBANCE
     Route: 048
     Dates: start: 201301, end: 2013
  5. AMPYRA [Concomitant]
     Indication: GAIT DISTURBANCE
  6. BACLOFEN [Concomitant]
     Indication: PRODUCT USED FOR UNKNOWN INDICATION
     Dates: start: 2006
  7. GABAPENTIN [Concomitant]
     Indication: PRODUCT USED FOR UNKNOWN INDICATION
     Dates: start: 2006
  8. SINGULAIR [Concomitant]
     Indication: PRODUCT USED FOR UNKNOWN INDICATION
  9. OMEPRAZOLE [Concomitant]
     Indication: PRODUCT USED FOR UNKNOWN INDICATION
  10. OXYCODONE/APAP [Concomitant]
     Indication: PRODUCT USED FOR UNKNOWN INDICATION
  11. VITAMIN C [Concomitant]
     Indication: PRODUCT USED FOR UNKNOWN INDICATION
  12. CELEBREX [Concomitant]
     Indication: PRODUCT USED FOR UNKNOWN INDICATION
  13. VITAMIN D [Concomitant]
     Indication: PRODUCT USED FOR UNKNOWN INDICATION
  14. RANITIDINE [Concomitant]
     Indication: PRODUCT USED FOR UNKNOWN INDICATION
  15. CENTRUM MULTIVITAMIN [Concomitant]
     Indication: PRODUCT USED FOR UNKNOWN INDICATION
  16. FUROSEMIDE [Concomitant]
     Indication: PRODUCT USED FOR UNKNOWN INDICATION
  17. VENLAFAXINE ER [Concomitant]
     Indication: PRODUCT USED FOR UNKNOWN INDICATION
  18. FLUTICASONE [Concomitant]
     Indication: PRODUCT USED FOR UNKNOWN INDICATION
  19. KETOKONAZOL [Concomitant]
     Indication: PRODUCT USED FOR UNKNOWN INDICATION
  20. VENTOLIN [Concomitant]
     Indication: PRODUCT USED FOR UNKNOWN INDICATION
  21. ALLEGRA-D [Concomitant]
     Indication: PRODUCT USED FOR UNKNOWN INDICATION
  22. ADVAIR [Concomitant]
     Indication: PRODUCT USED FOR UNKNOWN INDICATION
  23. EPIPEN [Concomitant]
     Indication: PRODUCT USED FOR UNKNOWN INDICATION

REACTIONS (10)
  - Multiple sclerosis relapse [Unknown]
  - Muscle spasms [Recovered/Resolved]
  - Mobility decreased [Not Recovered/Not Resolved]
  - Fall [Recovered/Resolved]
  - Contusion [Unknown]
  - Muscular weakness [Unknown]
  - Tremor [Recovered/Resolved]
  - Balance disorder [Recovered/Resolved]
  - Gait disturbance [Not Recovered/Not Resolved]
  - Sinusitis [Unknown]
